FAERS Safety Report 14239627 (Version 2)
Quarter: 2017Q4

REPORT INFORMATION
  Report Type: Spontaneous
  Country: US (occurrence: US)
  Receive Date: 20171130
  Receipt Date: 20171205
  Transmission Date: 20180321
  Serious: Yes (Hospitalization, Other)
  Sender: FDA-Public Use
  Company Number: US-GLAXOSMITHKLINE-US2017GSK181677

PATIENT
  Age: 49 Year

DRUGS (5)
  1. ALBUTEROL. [Concomitant]
     Active Substance: ALBUTEROL
  2. INCRUSE ELLIPTA [Suspect]
     Active Substance: UMECLIDINIUM BROMIDE
     Indication: ASTHMA
     Dosage: 1 PUFF(S), QD
     Route: 055
     Dates: start: 20170821, end: 20170923
  3. MONTELUKAST [Suspect]
     Active Substance: MONTELUKAST SODIUM
     Indication: ASTHMA
     Dosage: 1 DF, QD
     Route: 048
     Dates: start: 20170821, end: 201709
  4. BREO ELLIPTA [Suspect]
     Active Substance: FLUTICASONE FUROATE\VILANTEROL TRIFENATATE
     Indication: ASTHMA
     Dosage: 1 PUFF(S), QD
     Route: 055
     Dates: start: 20170821, end: 20170923
  5. FLOVENT HFA [Suspect]
     Active Substance: FLUTICASONE PROPIONATE
     Indication: ASTHMA
     Dosage: 1 PUFF(S), UNK
     Route: 055
     Dates: start: 20170929, end: 20170929

REACTIONS (21)
  - Oedema [Unknown]
  - Adverse reaction [Unknown]
  - Asthenia [Not Recovered/Not Resolved]
  - Dyspnoea [Not Recovered/Not Resolved]
  - Ill-defined disorder [Unknown]
  - Muscle atrophy [Not Recovered/Not Resolved]
  - Lumbar puncture abnormal [Unknown]
  - Productive cough [Recovering/Resolving]
  - Foreign body aspiration [Unknown]
  - Facial pain [Not Recovered/Not Resolved]
  - Diplopia [Not Recovered/Not Resolved]
  - Foaming at mouth [Recovering/Resolving]
  - Tremor [Not Recovered/Not Resolved]
  - Wheelchair user [Unknown]
  - Chest discomfort [Unknown]
  - Weight decreased [Not Recovered/Not Resolved]
  - Respiratory distress [Recovered/Resolved]
  - Peripheral coldness [Unknown]
  - Muscle disorder [Unknown]
  - Throat irritation [Not Recovered/Not Resolved]
  - Arthralgia [Not Recovered/Not Resolved]

NARRATIVE: CASE EVENT DATE: 20170822
